FAERS Safety Report 7056507-4 (Version None)
Quarter: 2010Q4

REPORT INFORMATION
  Report Type: 
  Country: None (occurrence: None)
  Receive Date: 20101021
  Receipt Date: 20101012
  Transmission Date: 20110411
  Serious: Yes (Other)
  Sender: FDA-Public Use
  Company Number: HR-PFIZER INC-2010129287

PATIENT
  Sex: Male

DRUGS (1)
  1. SORTIS [Suspect]
     Indication: HYPERLIPIDAEMIA
     Dosage: 80 MG, UNK
     Route: 048

REACTIONS (2)
  - HEPATIC LESION [None]
  - TRANSAMINASES INCREASED [None]
